FAERS Safety Report 9447403 (Version 1)
Quarter: 2013Q3

REPORT INFORMATION
  Report Type: Spontaneous
  Country: US (occurrence: US)
  Receive Date: 20130806
  Receipt Date: 20130806
  Transmission Date: 20140515
  Serious: Yes (Hospitalization)
  Sender: FDA-Public Use
  Company Number: FK201302924

PATIENT
  Age: 57 Year
  Sex: Female

DRUGS (3)
  1. CARBOPLATIN [Suspect]
     Indication: BREAST CANCER STAGE II
     Route: 042
  2. DOCETAXEL [Suspect]
     Indication: BREAST CANCER STAGE II
     Route: 042
  3. TRASTUZUMAB [Suspect]
     Indication: BREAST CANCER STAGE II
     Route: 042

REACTIONS (6)
  - Thrombotic microangiopathy [None]
  - Dyspnoea exertional [None]
  - Fatigue [None]
  - Thrombocytopenia [None]
  - Renal failure acute [None]
  - Anaemia [None]
